FAERS Safety Report 9710509 (Version 1)
Quarter: 2013Q4

REPORT INFORMATION
  Report Type: Spontaneous
  Country: US (occurrence: US)
  Receive Date: 20131126
  Receipt Date: 20131126
  Transmission Date: 20140711
  Serious: No
  Sender: FDA-Public Use
  Company Number: US-BRISTOL-MYERS SQUIBB COMPANY-18846253

PATIENT
  Age: 63 Year
  Sex: Female

DRUGS (2)
  1. BYETTA [Suspect]
     Indication: TYPE 2 DIABETES MELLITUS
  2. HUMALOG [Concomitant]
     Dosage: 1DF=45 UNITS IN THE MORNING AND 25UNITS AT NIGHT

REACTIONS (3)
  - Hunger [Unknown]
  - Diarrhoea [Unknown]
  - Nausea [Unknown]
